FAERS Safety Report 5038727-3 (Version None)
Quarter: 2006Q2

REPORT INFORMATION
  Report Type: 
  Country: None (occurrence: None)
  Receive Date: 20060629
  Receipt Date: 20060526
  Transmission Date: 20061013
  Serious: Yes (Hospitalization)
  Sender: FDA-Public Use
  Company Number: US-ROCHE-449859

PATIENT
  Age: 54 Year
  Sex: Male
  Weight: 58.1 kg

DRUGS (4)
  1. PEGASYS [Suspect]
     Dosage: STRENGTH 180MCG/0.5ML.
     Route: 058
     Dates: start: 20050817
  2. COPEGUS [Suspect]
     Route: 048
     Dates: start: 20050817
  3. VENTOLIN [Concomitant]
     Indication: ASTHMA
     Route: 055
  4. ADVAIR DISKUS 100/50 [Concomitant]
     Indication: ASTHMA
     Route: 048

REACTIONS (8)
  - ASTHMA [None]
  - CONDITION AGGRAVATED [None]
  - DYSPNOEA [None]
  - FATIGUE [None]
  - IRRITABILITY [None]
  - PRURITUS [None]
  - SYNCOPE [None]
  - WHITE BLOOD CELL COUNT DECREASED [None]
